FAERS Safety Report 8479094-2 (Version None)
Quarter: 2012Q2

REPORT INFORMATION
  Report Type: 
  Country: None (occurrence: None)
  Receive Date: 20120629
  Receipt Date: 20120625
  Transmission Date: 20120825
  Serious: Yes (Other)
  Sender: FDA-Public Use
  Company Number: US-BAYER-2012-063993

PATIENT
  Age: 47 Year
  Sex: Female
  Weight: 59.864 kg

DRUGS (3)
  1. ASPIRIN [Suspect]
     Indication: BACK PAIN
     Dosage: 2 DF, UNK
     Route: 048
     Dates: start: 20120624
  2. ANTIHYPERTENSIVES [Concomitant]
  3. HYDROCHLOROTHIAZIDE [Concomitant]

REACTIONS (3)
  - FOREIGN BODY [None]
  - THROAT IRRITATION [None]
  - OROPHARYNGEAL PAIN [None]
